FAERS Safety Report 11212890 (Version 1)
Quarter: 2015Q2

REPORT INFORMATION
  Report Type: Spontaneous
  Country: US (occurrence: None)
  Receive Date: 20150622
  Receipt Date: 20150622
  Transmission Date: 20150821
  Serious: No
  Sender: FDA-Public Use
  Company Number: None

PATIENT
  Age: 69 Year
  Sex: Female
  Weight: 79.5 kg

DRUGS (3)
  1. ZYVOX [Suspect]
     Active Substance: LINEZOLID
     Indication: ENTEROCOCCAL INFECTION
     Route: 048
  2. HEPARIN IV (BOLUS) [Suspect]
     Active Substance: HEPARIN SODIUM
     Indication: JUGULAR VEIN THROMBOSIS
     Dosage: HEPARIN 25,000 UNITS/500 ML
     Route: 042
  3. HEPARIN IV (BOLUS) [Suspect]
     Active Substance: HEPARIN SODIUM
     Dosage: HEPARIN 25,000 UNITS/500 ML
     Route: 042

REACTIONS (1)
  - Thrombocytopenia [None]

NARRATIVE: CASE EVENT DATE: 20150606
